FAERS Safety Report 5392739-9 (Version None)
Quarter: 2007Q3

REPORT INFORMATION
  Report Type: 
  Country: None (occurrence: None)
  Receive Date: 20070720
  Receipt Date: 20070711
  Transmission Date: 20080115
  Serious: Yes (Hospitalization, Congenital Anomaly, Other)
  Sender: FDA-Public Use
  Company Number: JP-PFIZER INC-2007053959

PATIENT
  Sex: Female

DRUGS (11)
  1. VFEND [Suspect]
     Route: 048
     Dates: start: 20070328, end: 20070329
  2. VFEND [Suspect]
     Route: 042
     Dates: start: 20070520, end: 20070523
  3. PAZUFLOXACIN [Concomitant]
  4. LAC B [Concomitant]
     Route: 048
     Dates: start: 20070410, end: 20070706
  5. GLEEVEC [Concomitant]
     Route: 048
     Dates: start: 20070417, end: 20070530
  6. POLYCARBOPHIL CALCIUM [Concomitant]
     Route: 048
     Dates: start: 20070510, end: 20070525
  7. MEROPEN [Concomitant]
     Route: 042
     Dates: start: 20070514, end: 20070521
  8. DOPAMINE HCL [Concomitant]
     Route: 042
     Dates: start: 20070516, end: 20070531
  9. PRIMPERAN INJ [Concomitant]
     Route: 042
     Dates: start: 20070517, end: 20070522
  10. PAZUCROSS [Concomitant]
     Route: 042
     Dates: start: 20070521, end: 20070527
  11. FAMOTIDINE [Concomitant]
     Route: 048

REACTIONS (1)
  - ALTERED STATE OF CONSCIOUSNESS [None]
